FAERS Safety Report 19628225 (Version 1)
Quarter: 2021Q3

REPORT INFORMATION
  Report Type: Spontaneous
  Country: US (occurrence: US)
  Receive Date: 20210729
  Receipt Date: 20210729
  Transmission Date: 20211014
  Serious: Yes (Other)
  Sender: FDA-Public Use
  Company Number: US-ORGANON-O2107USA001983

PATIENT
  Age: 25 Year
  Sex: Male

DRUGS (12)
  1. CYCLOBENZAPRINE. [Suspect]
     Active Substance: CYCLOBENZAPRINE
     Dosage: UNK
  2. TRAZODONE [Suspect]
     Active Substance: TRAZODONE HYDROCHLORIDE
     Dosage: UNK
  3. CODEINE [Suspect]
     Active Substance: CODEINE
     Dosage: UNK
  4. GABAPENTIN. [Suspect]
     Active Substance: GABAPENTIN
     Dosage: UNK
  5. HYDROXYZINE [Suspect]
     Active Substance: HYDROXYZINE HYDROCHLORIDE
     Dosage: UNK
  6. MITRAGYNINE [Suspect]
     Active Substance: HERBALS\MITRAGYNINE
     Dosage: UNK
  7. THEBAINE [Suspect]
     Active Substance: THEBAINE
     Dosage: UNK
  8. SERTRALINE [Suspect]
     Active Substance: SERTRALINE HYDROCHLORIDE
     Dosage: UNK
  9. MORPHINE [Suspect]
     Active Substance: MORPHINE
     Dosage: UNK
  10. CLONIDINE. [Suspect]
     Active Substance: CLONIDINE
     Dosage: UNK
  11. ZOLPIDEM [Suspect]
     Active Substance: ZOLPIDEM TARTRATE
     Dosage: UNK
  12. REMERON [Suspect]
     Active Substance: MIRTAZAPINE
     Dosage: UNK

REACTIONS (1)
  - Drug abuse [Unknown]
